FAERS Safety Report 9419828 (Version 3)
Quarter: 2014Q3

REPORT INFORMATION
  Report Type: Report from Study
  Country: CA (occurrence: CA)
  Receive Date: 20130725
  Receipt Date: 20140812
  Transmission Date: 20150326
  Serious: Yes (Death, Hospitalization, Other)
  Sender: FDA-Public Use
  Company Number: CA-INCYTE CORPORATION-2012IN002749

PATIENT
  Age: 76 Year
  Sex: Male

DRUGS (9)
  1. LOPERAMIDE [Concomitant]
     Active Substance: LOPERAMIDE
     Dosage: UNK
  2. FUROSEMIDE. [Concomitant]
     Active Substance: FUROSEMIDE
     Dosage: UNK
  3. JAKAFI [Suspect]
     Active Substance: RUXOLITINIB
     Dosage: 5 MG, BID
     Route: 048
     Dates: start: 20130401, end: 20130613
  4. FORZA [Concomitant]
     Dosage: UNK
  5. JAKAFI [Suspect]
     Active Substance: RUXOLITINIB
     Dosage: UNK UKN, UNK
     Route: 048
  6. SODIUM CHLORIDE. [Concomitant]
     Active Substance: SODIUM CHLORIDE
     Dosage: UNK
  7. LANSOPRAZOLE. [Concomitant]
     Active Substance: LANSOPRAZOLE
     Dosage: UNK
  8. JAKAFI [Suspect]
     Active Substance: RUXOLITINIB
     Indication: MYELOFIBROSIS
     Dosage: 5 MG, BID
     Route: 048
     Dates: start: 20121116, end: 201303
  9. JAMIESON MAGNESIUM [Concomitant]
     Dosage: UNK

REACTIONS (9)
  - Death [Fatal]
  - Platelet count decreased [Fatal]
  - Gingival disorder [Unknown]
  - Calculus urinary [Unknown]
  - Mouth haemorrhage [Recovered/Resolved]
  - Prostatomegaly [Not Recovered/Not Resolved]
  - Vertigo [Recovering/Resolving]
  - Haemoglobin decreased [Unknown]
  - Abscess oral [Unknown]

NARRATIVE: CASE EVENT DATE: 20121228
